FAERS Safety Report 21357266 (Version 1)
Quarter: 2022Q3

REPORT INFORMATION
  Report Type: Spontaneous
  Country: US (occurrence: US)
  Receive Date: 20220921
  Receipt Date: 20220921
  Transmission Date: 20221027
  Serious: Yes (Other)
  Sender: FDA-Public Use
  Company Number: US-CELLTRION INC.-2022US014859

PATIENT

DRUGS (2)
  1. TRUXIMA [Suspect]
     Active Substance: RITUXIMAB-ABBS
     Indication: Haematopoietic neoplasm
     Dosage: (600 MG VERY 7 DAYS X 4 DOSES)
     Dates: start: 20220908
  2. TRUXIMA [Suspect]
     Active Substance: RITUXIMAB-ABBS
     Indication: Intestinal mass

REACTIONS (3)
  - Haematopoietic neoplasm [Unknown]
  - Intestinal mass [Unknown]
  - Off label use [Unknown]
